FAERS Safety Report 7084726-X (Version None)
Quarter: 2010Q4

REPORT INFORMATION
  Report Type: 
  Country: None (occurrence: None)
  Receive Date: 20101104
  Receipt Date: 20101026
  Transmission Date: 20110411
  Serious: Yes (Hospitalization, Disabling, Other)
  Sender: FDA-Public Use
  Company Number: US-MERCK-0902USA00847

PATIENT
  Age: 47 Year
  Sex: Female

DRUGS (3)
  1. FOSAMAX [Suspect]
     Indication: OSTEOPOROSIS
     Route: 048
  2. ACTONEL [Suspect]
     Route: 065
  3. ZOMETA [Suspect]
     Route: 065

REACTIONS (51)
  - ABDOMINAL PAIN LOWER [None]
  - ACTINOMYCOSIS [None]
  - ACUTE PRERENAL FAILURE [None]
  - ADVERSE DRUG REACTION [None]
  - ADVERSE EVENT [None]
  - ANAEMIA [None]
  - ANXIETY [None]
  - ARTHRALGIA [None]
  - ASTHENIA [None]
  - BACK PAIN [None]
  - BONE DENSITY DECREASED [None]
  - CARDIOMYOPATHY [None]
  - CONGESTIVE CARDIOMYOPATHY [None]
  - CONSTIPATION [None]
  - DEHYDRATION [None]
  - DEPRESSION [None]
  - DIARRHOEA [None]
  - DIVERTICULUM [None]
  - FATIGUE [None]
  - FIBROUS HISTIOCYTOMA [None]
  - FISTULA [None]
  - FLANK PAIN [None]
  - GASTROOESOPHAGEAL REFLUX DISEASE [None]
  - HYPERCHOLESTEROLAEMIA [None]
  - HYPERKALAEMIA [None]
  - HYPERLIPIDAEMIA [None]
  - HYPERTENSION [None]
  - HYPOGAMMAGLOBULINAEMIA [None]
  - MALNUTRITION [None]
  - MALOCCLUSION [None]
  - MICTURITION URGENCY [None]
  - MITRAL VALVE PROLAPSE [None]
  - MULTIPLE MYELOMA [None]
  - MUSCULOSKELETAL DISCOMFORT [None]
  - ORAL FIBROMA [None]
  - OSTEOARTHRITIS [None]
  - OSTEOMYELITIS [None]
  - OSTEONECROSIS OF JAW [None]
  - OSTEOPENIA [None]
  - OVARIAN CYST [None]
  - PRURITUS [None]
  - PYOGENIC GRANULOMA [None]
  - SKIN DISORDER [None]
  - SKIN TOXICITY [None]
  - SOMATISATION DISORDER [None]
  - TACHYCARDIA [None]
  - TOOTH ABSCESS [None]
  - TOOTH DISORDER [None]
  - TOOTH INFECTION [None]
  - UPPER RESPIRATORY TRACT INFECTION [None]
  - WEIGHT DECREASED [None]
